FAERS Safety Report 8960950 (Version 1)
Quarter: 2012Q4

REPORT INFORMATION
  Report Type: 
  Country: US (occurrence: US)
  Receive Date: 20121212
  Receipt Date: 20121212
  Transmission Date: 20130627
  Serious: No
  Sender: FDA-Public Use
  Company Number: US-ASTRAZENECA-2012SE90046

PATIENT
  Age: 90 Year
  Sex: Female
  Weight: 52.2 kg

DRUGS (1)
  1. SYMBICORT [Suspect]
     Indication: CHRONIC OBSTRUCTIVE PULMONARY DISEASE
     Dosage: 160/4.5 mcg ,two times a day
     Route: 055
     Dates: start: 201210

REACTIONS (1)
  - Oropharyngeal pain [Unknown]
